FAERS Safety Report 8963927 (Version 1)
Quarter: 2012Q4

REPORT INFORMATION
  Report Type: 
  Country: US (occurrence: US)
  Receive Date: 20121213
  Receipt Date: 20121213
  Transmission Date: 20130627
  Serious: No
  Sender: FDA-Public Use
  Company Number: US-PFIZER INC-2004087034

PATIENT
  Age: 84 Year
  Sex: Female

DRUGS (2)
  1. MOTRIN [Suspect]
     Indication: PAIN IN EXTREMITY
     Dosage: 200 mg, 1 in 1 day
     Route: 048
     Dates: start: 20040809
  2. MOTRIN [Suspect]
     Indication: ARTHRITIS

REACTIONS (2)
  - Pain [Recovered/Resolved]
  - Condition aggravated [Recovered/Resolved]
